FAERS Safety Report 12241257 (Version 1)
Quarter: 2016Q2

REPORT INFORMATION
  Report Type: Spontaneous
  Country: US (occurrence: None)
  Receive Date: 20160405
  Receipt Date: 20160405
  Transmission Date: 20160815
  Serious: Yes (Disabling)
  Sender: FDA-Public Use
  Company Number: None

PATIENT
  Age: 40 Year
  Sex: Female
  Weight: 65.77 kg

DRUGS (6)
  1. ACYCLOVIR. [Concomitant]
     Active Substance: ACYCLOVIR
  2. COLLAGEN [Concomitant]
     Active Substance: COLLAGEN
  3. KLONOPIN [Concomitant]
     Active Substance: CLONAZEPAM
  4. BIOTIN [Concomitant]
     Active Substance: BIOTIN
  5. NEXPLANON [Suspect]
     Active Substance: ETONOGESTREL
  6. ESGIC PLUS [Concomitant]

REACTIONS (9)
  - Stress [None]
  - Restlessness [None]
  - Dyspareunia [None]
  - Abnormal dreams [None]
  - Depressed mood [None]
  - Crying [None]
  - Herpes virus infection [None]
  - Depression [None]
  - Vaginal odour [None]

NARRATIVE: CASE EVENT DATE: 20160403
